FAERS Safety Report 4619966-X (Version None)
Quarter: 2005Q1

REPORT INFORMATION
  Report Type: 
  Country: None (occurrence: None)
  Receive Date: 20050328
  Receipt Date: 20031008
  Transmission Date: 20050727
  Serious: Yes (Hospitalization)
  Sender: FDA-Public Use
  Company Number: DE-ABBOTT-03P-062-0236111-00

PATIENT
  Sex: Female
  Weight: 85 kg

DRUGS (12)
  1. HUMIRA [Suspect]
     Indication: RHEUMATOID ARTHRITIS
     Dosage: 40 MILLIGRAM
     Route: 058
     Dates: start: 20030616, end: 20031104
  2. METHOTREXATE [Concomitant]
     Indication: RHEUMATOID ARTHRITIS
     Dosage: 10 MILLIGRAM
     Route: 048
     Dates: start: 20020401
  3. CO-DIOVAN [Concomitant]
     Indication: HYPERTENSION
     Dosage: 80 MG/12.5 MG
     Route: 048
     Dates: start: 20020801, end: 20030702
  4. LEKOVIT CA [Concomitant]
     Indication: MINERAL SUPPLEMENTATION
     Dosage: 1500 MG/10 MG
     Route: 048
     Dates: start: 20010701
  5. PANTOPRAZOLE SODIUM [Concomitant]
     Indication: GASTROOESOPHAGEAL REFLUX DISEASE
     Route: 048
     Dates: start: 20030527, end: 20030702
  6. ROFECOXIB [Concomitant]
     Indication: RHEUMATOID ARTHRITIS
     Route: 048
     Dates: start: 19990101, end: 20030620
  7. LEVOTHYROXINE [Concomitant]
     Indication: HYPOTHYROIDISM
     Route: 048
     Dates: start: 19970701
  8. HYOSCINE HBR HYT [Concomitant]
     Indication: GASTROOESOPHAGEAL REFLUX DISEASE
     Route: 048
     Dates: start: 20030515, end: 20030702
  9. HYOSCINE HBR HYT [Concomitant]
     Indication: INTESTINAL SPASM
  10. PREDNISOLONE [Concomitant]
     Indication: RHEUMATOID ARTHRITIS
     Route: 048
     Dates: start: 20030812, end: 20030812
  11. CHLORTETRACYCLINE [Concomitant]
     Indication: RASH PAPULAR
     Route: 061
     Dates: start: 20030809, end: 20030813
  12. PREDNISOLONE [Concomitant]
     Dosage: 0-20 MILLIGRAM
     Route: 048
     Dates: start: 19830101, end: 20030618

REACTIONS (1)
  - GLOMERULONEPHRITIS MEMBRANOUS [None]
